FAERS Safety Report 4727545-9 (Version None)
Quarter: 2005Q3

REPORT INFORMATION
  Report Type: 
  Country: None (occurrence: None)
  Receive Date: 20050727
  Receipt Date: 20050727
  Transmission Date: 20060218
  Serious: Yes (Hospitalization)
  Sender: FDA-Public Use
  Company Number: None

PATIENT
  Age: 86 Year
  Sex: Male

DRUGS (17)
  1. FUROSEMIDE [Suspect]
     Dosage: 80MG PO QD
     Route: 048
     Dates: start: 20050423, end: 20050430
  2. ENALAPRIL [Suspect]
     Dosage: 2.5MG QD
     Dates: start: 20050421, end: 20050430
  3. AMIODARONE [Concomitant]
  4. ASPIRIN [Concomitant]
  5. PLAVIX [Concomitant]
  6. EMULSION TOPICAL CREAM OINTMENT [Concomitant]
  7. FLUNISOLIDE [Concomitant]
  8. HYDROCORTISONE [Concomitant]
  9. LACTULOSE [Concomitant]
  10. LEVOTHYROXINE [Concomitant]
  11. METOPROLOL [Concomitant]
  12. TRIAMCINOLONE [Concomitant]
  13. ISOSORBIDE DINITRATE [Concomitant]
  14. PRILOSEC [Concomitant]
  15. SIMVASTATIN [Concomitant]
  16. LASIX [Concomitant]
  17. LISINOPRIL [Concomitant]

REACTIONS (4)
  - BLOOD CREATININE INCREASED [None]
  - BLOOD UREA INCREASED [None]
  - DYSPNOEA [None]
  - INCORRECT DOSE ADMINISTERED [None]
